FAERS Safety Report 14713696 (Version 3)
Quarter: 2018Q2

REPORT INFORMATION
  Report Type: Spontaneous
  Country: BG (occurrence: BG)
  Receive Date: 20180404
  Receipt Date: 20180501
  Transmission Date: 20180711
  Serious: Yes (Other)
  Sender: FDA-Public Use
  Company Number: BG-BAYER-2018-059447

PATIENT
  Age: 50 Year
  Sex: Male

DRUGS (6)
  1. ABIRATERONE ACETATE. [Concomitant]
     Active Substance: ABIRATERONE ACETATE
     Indication: PROSTATE CANCER
     Dosage: 1000 MG, UNK
     Dates: start: 201705
  2. RADIUM-223 DICHLORIDE [Suspect]
     Active Substance: RADIUM RA-223 DICHLORIDE
     Indication: PROSTATE CANCER
     Dosage: 4.4MBQ
     Route: 042
     Dates: start: 20170418, end: 20170712
  3. DENOSUMAB [Concomitant]
     Active Substance: DENOSUMAB
     Indication: PROSTATE CANCER
  4. RADIUM-223 DICHLORIDE [Suspect]
     Active Substance: RADIUM RA-223 DICHLORIDE
     Indication: PROSTATE CANCER
     Dosage: 4.4MBQ
     Route: 042
     Dates: start: 20170418, end: 20170712
  5. RADIUM-223 DICHLORIDE [Suspect]
     Active Substance: RADIUM RA-223 DICHLORIDE
     Indication: PROSTATE CANCER
     Dosage: 4.4MBQ
     Route: 042
     Dates: start: 20170418, end: 20170712
  6. RADIUM-223 DICHLORIDE [Suspect]
     Active Substance: RADIUM RA-223 DICHLORIDE
     Indication: PROSTATE CANCER
     Dosage: 4.4MBQ
     Route: 042
     Dates: start: 20170418, end: 20170712

REACTIONS (5)
  - Metastases to soft tissue [None]
  - Metastases to lymph nodes [None]
  - Fatigue [None]
  - Prostate cancer [None]
  - Metastases to lung [None]

NARRATIVE: CASE EVENT DATE: 201706
